FAERS Safety Report 18697420 (Version 2)
Quarter: 2021Q1

REPORT INFORMATION
  Report Type: Report from Study
  Country: None (occurrence: US)
  Receive Date: 20210105
  Receipt Date: 20210115
  Transmission Date: 20210419
  Serious: Yes (Congenital Anomaly, Other)
  Sender: FDA-Public Use
  Company Number: US-ABBVIE-20K-163-3658585-00

PATIENT
  Age: 48 Year
  Sex: Female
  Weight: 126.67 kg

DRUGS (5)
  1. HUMIRA [Suspect]
     Active Substance: ADALIMUMAB
     Route: 058
  2. NORETHINDRONE. [Concomitant]
     Active Substance: NORETHINDRONE
     Indication: PRODUCT USED FOR UNKNOWN INDICATION
  3. HUMIRA [Suspect]
     Active Substance: ADALIMUMAB
     Indication: HIDRADENITIS
     Route: 058
     Dates: start: 2017
  4. HUMIRA [Suspect]
     Active Substance: ADALIMUMAB
     Indication: HIDRADENITIS
     Dosage: CITRATE FREE
     Route: 058
  5. VITAMIN C [Concomitant]
     Active Substance: ASCORBIC ACID
     Indication: SUPPLEMENTATION THERAPY

REACTIONS (13)
  - Feeling abnormal [Unknown]
  - Immunodeficiency [Not Recovered/Not Resolved]
  - Sleep apnoea syndrome [Not Recovered/Not Resolved]
  - COVID-19 [Recovered/Resolved]
  - Melanocytic naevus [Not Recovered/Not Resolved]
  - Lethargy [Recovered/Resolved]
  - Hypertension [Recovering/Resolving]
  - Skin laceration [Unknown]
  - Asthenia [Recovered/Resolved]
  - Injection site pain [Recovered/Resolved]
  - Trigger finger [Recovering/Resolving]
  - Type 2 diabetes mellitus [Recovering/Resolving]
  - Hidradenitis [Recovering/Resolving]

NARRATIVE: CASE EVENT DATE: 2017
